FAERS Safety Report 5424923-X (Version None)
Quarter: 2007Q3

REPORT INFORMATION
  Report Type: 
  Country: None (occurrence: None)
  Receive Date: 20070824
  Receipt Date: 20070809
  Transmission Date: 20080115
  Serious: Yes (Hospitalization)
  Sender: FDA-Public Use
  Company Number: AU-GENENTECH-246410

PATIENT
  Sex: Female
  Weight: 53 kg

DRUGS (4)
  1. BEVACIZUMAB [Suspect]
     Indication: COLORECTAL CANCER METASTATIC
     Dosage: 430 MG, Q3W
     Route: 042
     Dates: start: 20060515
  2. CAPECITABINE [Suspect]
     Indication: COLORECTAL CANCER METASTATIC
     Dosage: 1300 MG, UNK
     Route: 048
     Dates: start: 20060515
  3. MITOMYCIN [Concomitant]
     Indication: COLORECTAL CANCER METASTATIC
     Dosage: 7 MG/M2, Q6W
     Route: 042
     Dates: start: 20060515
  4. SOLPRIN [Concomitant]
     Indication: DRUG USE FOR UNKNOWN INDICATION
     Dates: start: 19960615

REACTIONS (1)
  - RENAL IMPAIRMENT [None]
